FAERS Safety Report 5789633-8 (Version None)
Quarter: 2008Q2

REPORT INFORMATION
  Report Type: 
  Country: None (occurrence: None)
  Receive Date: 20080626
  Receipt Date: 20080211
  Transmission Date: 20081010
  Serious: No
  Sender: FDA-Public Use
  Company Number: A0708633A

PATIENT
  Age: 71 Year
  Sex: Female

DRUGS (1)
  1. ALLI [Suspect]
     Dates: end: 20080128

REACTIONS (8)
  - BLISTER [None]
  - DYSPHAGIA [None]
  - DYSPNOEA [None]
  - EYE SWELLING [None]
  - HYPERSENSITIVITY [None]
  - NASAL CONGESTION [None]
  - SOMNOLENCE [None]
  - THROAT TIGHTNESS [None]
